FAERS Safety Report 5863293-X (Version None)
Quarter: 2008Q3

REPORT INFORMATION
  Report Type: 
  Country: None (occurrence: None)
  Receive Date: 20080828
  Receipt Date: 20080822
  Transmission Date: 20090109
  Serious: Yes (Life-Threatening, Hospitalization)
  Sender: FDA-Public Use
  Company Number: JP-PFIZER INC-2008066261

PATIENT
  Age: 35 Year
  Sex: Male

DRUGS (4)
  1. ZOLOFT [Suspect]
     Dosage: DAILY DOSE:25MG
     Route: 048
     Dates: start: 20080731, end: 20080801
  2. ABILIFY [Concomitant]
  3. LUVOX [Concomitant]
  4. ALL OTHER THERAPEUTIC PRODUCTS [Concomitant]

REACTIONS (1)
  - NEUROLEPTIC MALIGNANT SYNDROME [None]
